FAERS Safety Report 6108358-2 (Version None)
Quarter: 2009Q1

REPORT INFORMATION
  Report Type: 
  Country: None (occurrence: None)
  Receive Date: 20090309
  Receipt Date: 20090225
  Transmission Date: 20090719
  Serious: Yes (Death)
  Sender: FDA-Public Use
  Company Number: JP-PFIZER INC-2009179300

PATIENT

DRUGS (4)
  1. CAMPTOSAR [Suspect]
     Indication: LARGE INTESTINE CARCINOMA
     Dosage: 190 MG
     Route: 041
     Dates: start: 20080423, end: 20090220
  2. FLUOROURACIL [Suspect]
     Indication: LARGE INTESTINE CARCINOMA
     Dosage: 650 MG
     Route: 040
     Dates: start: 20080423, end: 20090220
  3. FLUOROURACIL [Suspect]
     Dosage: 2050 MG
     Route: 041
     Dates: start: 20080423, end: 20090220
  4. CALCIUM LEVOFOLINATE [Suspect]
     Indication: LARGE INTESTINE CARCINOMA
     Dosage: 170 MG
     Route: 041
     Dates: start: 20080423, end: 20090220

REACTIONS (1)
  - DIABETIC COMA [None]
